FAERS Safety Report 8864655 (Version 2)
Quarter: 2014Q2

REPORT INFORMATION
  Report Type: Spontaneous
  Country: US (occurrence: US)
  Receive Date: 20121024
  Receipt Date: 20140501
  Transmission Date: 20141212
  Serious: No
  Sender: FDA-Public Use
  Company Number: US-AMGEN-USASP2011068191

PATIENT
  Age: 47 Year
  Sex: Male
  Weight: 99.77 kg

DRUGS (4)
  1. ENBREL [Suspect]
     Indication: PSORIASIS
     Dosage: 50 MG, 2 TIMES/WK
     Route: 065
     Dates: start: 2007
  2. ENBREL [Suspect]
     Indication: PSORIATIC ARTHROPATHY
  3. STELARA [Suspect]
     Indication: PRODUCT USED FOR UNKNOWN INDICATION
     Dosage: UNK
     Route: 065
  4. HUMIRA [Suspect]
     Indication: PSORIASIS
     Dosage: 40 MG, Q2WK
     Route: 065
     Dates: start: 2009, end: 2011

REACTIONS (4)
  - Headache [Recovered/Resolved]
  - Psoriatic arthropathy [Recovered/Resolved]
  - Drug ineffective [Not Recovered/Not Resolved]
  - Psoriasis [Not Recovered/Not Resolved]
